FAERS Safety Report 18724722 (Version 2)
Quarter: 2021Q1

REPORT INFORMATION
  Report Type: Spontaneous
  Country: US (occurrence: US)
  Receive Date: 20210111
  Receipt Date: 20210113
  Transmission Date: 20210419
  Serious: Yes (Hospitalization, Other)
  Sender: FDA-Public Use
  Company Number: US-PFIZER INC-2021008225

PATIENT
  Sex: Female

DRUGS (6)
  1. METHYLPREDNISOLONE. [Suspect]
     Active Substance: METHYLPREDNISOLONE
     Dosage: 24 MG DAILY (TAKE 6 TABLETS ON THE FIRST DAY, 2ND DAY 5 TABLETS, 3RD DAY 4 TABLETS, ETC)
     Dates: start: 2012
  2. METHYLPREDNISOLONE. [Suspect]
     Active Substance: METHYLPREDNISOLONE
     Dosage: 16 MG DAILY (TAKE 6 TABLETS ON THE FIRST DAY, 2ND DAY 5 TABLETS, 3RD DAY 4 TABLETS, ETC )
  3. METHYLPREDNISOLONE. [Suspect]
     Active Substance: METHYLPREDNISOLONE
     Dosage: 12 MG DAILY (TAKE 6 TABLETS ON THE FIRST DAY, 2ND DAY 5 TABLETS, 3RD DAY 4 TABLETS, ETC )
  4. METHYLPREDNISOLONE. [Suspect]
     Active Substance: METHYLPREDNISOLONE
     Dosage: 4 MG DAILY (TAKE 6 TABLETS ON THE FIRST DAY, 2ND DAY 5 TABLETS, 3RD DAY 4 TABLETS, ETC )
  5. METHYLPREDNISOLONE. [Suspect]
     Active Substance: METHYLPREDNISOLONE
     Dosage: 20 MG DAILY (TAKE 6 TABLETS ON THE FIRST DAY, 2ND DAY 5 TABLETS, 3RD DAY 4 TABLETS, ETC)
  6. METHYLPREDNISOLONE. [Suspect]
     Active Substance: METHYLPREDNISOLONE
     Dosage: 8 MG DAILY (TAKE 6 TABLETS ON THE FIRST DAY, 2ND DAY 5 TABLETS, 3RD DAY 4 TABLETS, ETC )

REACTIONS (2)
  - Brain neoplasm [Unknown]
  - Atrial fibrillation [Unknown]
